FAERS Safety Report 15962803 (Version 1)
Quarter: 2019Q1

REPORT INFORMATION
  Report Type: Spontaneous
  Country: CA (occurrence: CA)
  Receive Date: 20190214
  Receipt Date: 20190214
  Transmission Date: 20190417
  Serious: Yes (Other)
  Sender: FDA-Public Use
  Company Number: CA-TEVA-2019-CA-1012737

PATIENT
  Sex: Male

DRUGS (12)
  1. STELARA [Concomitant]
     Active Substance: USTEKINUMAB
  2. REMICADE [Suspect]
     Active Substance: INFLIXIMAB
     Indication: PRODUCT USED FOR UNKNOWN INDICATION
     Route: 065
  3. METHOTREXATE SODIUM. [Suspect]
     Active Substance: METHOTREXATE SODIUM
     Indication: PRODUCT USED FOR UNKNOWN INDICATION
     Route: 065
  4. INVOKANA [Concomitant]
     Active Substance: CANAGLIFLOZIN
  5. ENBREL [Suspect]
     Active Substance: ETANERCEPT
     Indication: PRODUCT USED FOR UNKNOWN INDICATION
     Route: 065
  6. HUMIRA [Suspect]
     Active Substance: ADALIMUMAB
     Indication: PRODUCT USED FOR UNKNOWN INDICATION
     Route: 058
  7. CICLOSPORIN [Suspect]
     Active Substance: CYCLOSPORINE
     Indication: PSORIASIS
     Route: 065
  8. METHOTREXATE. [Suspect]
     Active Substance: METHOTREXATE
     Indication: PRODUCT USED FOR UNKNOWN INDICATION
     Route: 065
  9. STELARA [Concomitant]
     Active Substance: USTEKINUMAB
  10. APREMILAST [Concomitant]
     Active Substance: APREMILAST
  11. SORIATANE [Suspect]
     Active Substance: ACITRETIN
     Indication: PRODUCT USED FOR UNKNOWN INDICATION
  12. PERINDOPRIL [Concomitant]
     Active Substance: PERINDOPRIL

REACTIONS (5)
  - Hepatic fibrosis [Unknown]
  - Hepatic cirrhosis [Unknown]
  - Drug ineffective [Unknown]
  - Drug intolerance [Unknown]
  - Skin injury [Unknown]
